FAERS Safety Report 9966430 (Version 2)
Quarter: 2014Q1

REPORT INFORMATION
  Report Type: Report from Study
  Country: US (occurrence: US)
  Receive Date: 20140305
  Receipt Date: 20140305
  Transmission Date: 20141002
  Serious: No
  Sender: FDA-Public Use
  Company Number: US-ABBVIE-13P-163-1108911-00

PATIENT
  Sex: Male

DRUGS (6)
  1. HUMIRA [Suspect]
     Indication: RHEUMATOID ARTHRITIS
     Dates: start: 201201
  2. LOSARTAN [Concomitant]
     Indication: BLOOD PRESSURE
  3. PANTOPRAZOLE [Concomitant]
     Indication: DYSPEPSIA
  4. AMLODIPINE BESYLATE [Concomitant]
     Indication: BLOOD PRESSURE
  5. SERTRALINE [Concomitant]
     Indication: EMOTIONAL DISORDER
  6. NITROSTAT [Concomitant]
     Indication: CHEST PAIN

REACTIONS (5)
  - Joint injury [Unknown]
  - Pain [Unknown]
  - Swelling [Not Recovered/Not Resolved]
  - Local swelling [Not Recovered/Not Resolved]
  - Pain in extremity [Not Recovered/Not Resolved]
